FAERS Safety Report 20148316 (Version 10)
Quarter: 2024Q3

REPORT INFORMATION
  Report Type: Spontaneous
  Country: JP (occurrence: JP)
  Receive Date: 20211204
  Receipt Date: 20240928
  Transmission Date: 20241017
  Serious: Yes (Life-Threatening, Hospitalization, Other)
  Sender: UNITED THERAPEUTICS
  Company Number: JP-UNITED THERAPEUTICS-UNT-2021-022062

PATIENT
  Sex: Female
  Weight: 20.1 kg

DRUGS (7)
  1. UNITUXIN [Suspect]
     Active Substance: DINUTUXIMAB
     Indication: Neuroblastoma
     Dosage: 17.5 MG/M2, CYCLICAL (CYCLE 1)
     Route: 041
     Dates: start: 20211019, end: 20211022
  2. FILGRASTIM [Suspect]
     Active Substance: FILGRASTIM
     Indication: Neuroblastoma
     Dosage: 5 ?G/KG
     Dates: start: 20211016, end: 20211027
  3. MORPHINE HYDROCHLORIDE [Concomitant]
     Active Substance: MORPHINE HYDROCHLORIDE
     Indication: Abdominal pain
     Dosage: UNK
     Dates: start: 20211019, end: 20211023
  4. ACETAMINOPHEN [Concomitant]
     Active Substance: ACETAMINOPHEN
     Indication: Prophylaxis
     Dosage: UNK
     Dates: start: 20211019, end: 20211022
  5. HYDROXYZINE HYDROCHLORIDE [Concomitant]
     Active Substance: HYDROXYZINE HYDROCHLORIDE
     Indication: Prophylaxis
     Dosage: UNK
     Dates: start: 20211019, end: 20211022
  6. METHYLPREDNISOLONE [Concomitant]
     Active Substance: METHYLPREDNISOLONE
     Indication: Product used for unknown indication
     Dosage: UNK
  7. TECELEUKIN [Concomitant]
     Active Substance: TECELEUKIN
     Indication: Product used for unknown indication
     Dosage: UNK

REACTIONS (15)
  - Venoocclusive liver disease [Recovered/Resolved]
  - Thrombotic microangiopathy [Recovered/Resolved with Sequelae]
  - Pericardial effusion [Recovered/Resolved]
  - Abdominal pain [Recovered/Resolved]
  - Oxygen saturation decreased [Recovered/Resolved]
  - Hepatic function abnormal [Recovered/Resolved]
  - Oedema [Recovered/Resolved]
  - Urine output decreased [Recovering/Resolving]
  - Abdominal pain [Recovering/Resolving]
  - Lung disorder [Recovered/Resolved with Sequelae]
  - Ascites [Unknown]
  - Pleural effusion [Unknown]
  - Hepatomegaly [Unknown]
  - Renal impairment [Recovered/Resolved]
  - Dizziness [Unknown]

NARRATIVE: CASE EVENT DATE: 20210101
